FAERS Safety Report 4690304-X (Version None)
Quarter: 2005Q2

REPORT INFORMATION
  Report Type: 
  Country: None (occurrence: None)
  Receive Date: 20050615
  Receipt Date: 20050609
  Transmission Date: 20051028
  Serious: Yes (Hospitalization)
  Sender: FDA-Public Use
  Company Number: HCM-0090

PATIENT
  Age: 68 Year
  Sex: Male

DRUGS (13)
  1. TOPOTECAN [Suspect]
     Dosage: 1.1MG PER DAY
     Route: 042
     Dates: start: 20031030, end: 20031201
  2. CARBOPLATIN [Concomitant]
     Dosage: 680MG PER DAY
     Route: 042
     Dates: start: 20031103, end: 20031103
  3. METOCLOPRAMIDE [Concomitant]
     Dosage: 10MG PER DAY
     Route: 042
     Dates: start: 20031031, end: 20031102
  4. SODIUM CHLORIDE [Concomitant]
     Dosage: 3PACK PER DAY
     Route: 048
     Dates: start: 20031029, end: 20031128
  5. ETIZOLAM [Concomitant]
     Dosage: 3TAB PER DAY
     Route: 048
     Dates: start: 20031029, end: 20031128
  6. LEVOFLOXACIN [Concomitant]
     Dosage: 300MG PER DAY
     Route: 048
     Dates: start: 20031117, end: 20031119
  7. PENTAZOCINE LACTATE [Concomitant]
     Route: 048
     Dates: start: 20031030
  8. SENNOSIDE [Concomitant]
     Route: 048
     Dates: start: 20031106
  9. KETOPROFEN [Concomitant]
     Dates: start: 20031030
  10. ISODINE [Concomitant]
     Dates: start: 20031101
  11. MODACIN [Concomitant]
     Route: 042
     Dates: start: 20031104, end: 20041113
  12. NEUTROGIN [Concomitant]
     Dosage: 100UG PER DAY
     Route: 058
     Dates: start: 20031029, end: 20031113
  13. GRANISETRON  HCL [Concomitant]
     Dosage: 3MG PER DAY
     Route: 042
     Dates: start: 20031103, end: 20031103

REACTIONS (5)
  - BLOOD ALKALINE PHOSPHATASE DECREASED [None]
  - COUGH [None]
  - NEUTROPHIL COUNT DECREASED [None]
  - PLATELET COUNT DECREASED [None]
  - WHITE BLOOD CELL COUNT DECREASED [None]
